FAERS Safety Report 9941356 (Version 1)
Quarter: 2014Q1

REPORT INFORMATION
  Report Type: Report from Study
  Country: US (occurrence: US)
  Receive Date: 20140303
  Receipt Date: 20140303
  Transmission Date: 20141002
  Serious: No
  Sender: FDA-Public Use
  Company Number: US-ABBVIE-13P-163-1042843-00

PATIENT
  Sex: Female
  Weight: 81.72 kg

DRUGS (12)
  1. HUMIRA [Suspect]
     Indication: ARTHRITIS ENTEROPATHIC
     Dates: start: 2006
  2. ASACOL [Concomitant]
     Indication: COLITIS
  3. TRAMADOL [Concomitant]
     Indication: ARTHRALGIA
  4. PREDNISONE [Concomitant]
     Indication: ARTHRITIS
  5. IMURAN [Concomitant]
     Indication: ARTHRITIS
  6. MEDROXYPROGESTERONE [Concomitant]
     Indication: HORMONE REPLACEMENT THERAPY
  7. ESTRADIOL [Concomitant]
     Indication: HORMONE REPLACEMENT THERAPY
  8. MUCINEX [Concomitant]
     Indication: SINUS CONGESTION
  9. ZIRTEC [Concomitant]
     Indication: HYPERSENSITIVITY
  10. GLUCOSAMINE + CHONDROITIN [Concomitant]
     Indication: ARTHRITIS
  11. PRILOSEC [Concomitant]
     Indication: GASTRIC DISORDER
  12. PRILOSEC [Concomitant]
     Indication: PROPHYLAXIS

REACTIONS (1)
  - Off label use [Not Recovered/Not Resolved]
